FAERS Safety Report 6304330-8 (Version None)
Quarter: 2009Q3

REPORT INFORMATION
  Report Type: 
  Country: None (occurrence: None)
  Receive Date: 20090811
  Receipt Date: 20090804
  Transmission Date: 20100115
  Serious: Yes (Other)
  Sender: FDA-Public Use
  Company Number: US-BAYER-200925265NA

PATIENT
  Age: 27 Year
  Sex: Female
  Weight: 98 kg

DRUGS (2)
  1. MIRENA [Suspect]
     Indication: CONTRACEPTION
     Dosage: AS USED: 20 ?G
     Route: 015
     Dates: start: 20090501, end: 20090702
  2. MIRENA [Suspect]
     Dosage: AS USED: 20 ?G
     Route: 015
     Dates: start: 20090702

REACTIONS (2)
  - PELVIC PAIN [None]
  - UTERINE RUPTURE [None]
